FAERS Safety Report 9234832 (Version 1)
Quarter: 2013Q2

REPORT INFORMATION
  Report Type: Spontaneous
  Country: US (occurrence: US)
  Receive Date: 20130416
  Receipt Date: 20130416
  Transmission Date: 20140414
  Serious: Yes (Other)
  Sender: FDA-Public Use
  Company Number: CHPA2013US006344

PATIENT
  Age: 45 Year
  Sex: Female

DRUGS (1)
  1. EXCEDRIN TENSION HEADACHE [Suspect]
     Indication: HEADACHE
     Dosage: UNK, UNK
     Route: 048

REACTIONS (2)
  - Blood cholesterol increased [Not Recovered/Not Resolved]
  - Hypothyroidism [Not Recovered/Not Resolved]
